FAERS Safety Report 14286406 (Version 2)
Quarter: 2018Q1

REPORT INFORMATION
  Report Type: Spontaneous
  Country: DE (occurrence: DE)
  Receive Date: 20171214
  Receipt Date: 20180206
  Transmission Date: 20180509
  Serious: Yes (Death, Hospitalization)
  Sender: FDA-Public Use
  Company Number: PHHY2017DE184950

PATIENT
  Age: 58 Year
  Sex: Female
  Weight: 75 kg

DRUGS (10)
  1. PERTUZUMAB. [Suspect]
     Active Substance: PERTUZUMAB
     Indication: HER-2 POSITIVE BREAST CANCER
     Dosage: 840 MG, QD (LOADING DOSE)
     Route: 042
     Dates: start: 20150727
  2. HERCEPTIN [Suspect]
     Active Substance: TRASTUZUMAB
     Dosage: 610 MG, QD (LOADING DOSE)
     Route: 042
     Dates: start: 20150727
  3. LYRICA [Concomitant]
     Active Substance: PREGABALIN
     Indication: POLYNEUROPATHY
     Dosage: 25 MG, QD
     Route: 048
  4. FENTANYL. [Concomitant]
     Active Substance: FENTANYL
     Indication: PAIN
     Dosage: 1 DF (75 UG/H), TID
     Route: 065
  5. SEVREDOL [Concomitant]
     Active Substance: MORPHINE
     Indication: PAIN
     Dosage: 20 MG, QD (AS REQUIRED)
     Route: 048
  6. IBUPROFEN. [Concomitant]
     Active Substance: IBUPROFEN
     Indication: PAIN
     Dosage: 1600 MG, QD (AS REQUIRED)
     Route: 048
  7. PERTUZUMAB. [Suspect]
     Active Substance: PERTUZUMAB
     Dosage: 420 MG, TID (MIANTAINENCE DOSE)
     Route: 042
     Dates: start: 20150817
  8. DOCETAXEL. [Suspect]
     Active Substance: DOCETAXEL
     Indication: BREAST CANCER
     Dosage: 140 MG, TID
     Route: 042
     Dates: start: 20150727
  9. HERCEPTIN [Suspect]
     Active Substance: TRASTUZUMAB
     Indication: HER-2 POSITIVE BREAST CANCER
     Dosage: 460 MG, UNK (MAINTAINENCE DOSE)
     Route: 042
  10. LYRICA [Concomitant]
     Active Substance: PREGABALIN
     Dosage: 75 MG, QD
     Route: 048

REACTIONS (2)
  - Erysipelas [Fatal]
  - Death [Fatal]

NARRATIVE: CASE EVENT DATE: 20150824
